FAERS Safety Report 9340419 (Version 3)
Quarter: 2013Q4

REPORT INFORMATION
  Report Type: Report from Study
  Country: US (occurrence: US)
  Receive Date: 20130610
  Receipt Date: 20131001
  Transmission Date: 20140711
  Serious: Yes (Hospitalization, Other)
  Sender: FDA-Public Use
  Company Number: PHEH2013US011945

PATIENT
  Age: 81 Year
  Sex: Male

DRUGS (3)
  1. EXELON PATCH [Suspect]
     Indication: DEMENTIA ALZHEIMER^S TYPE
     Dosage: 9.5 MG, DAILY
     Route: 062
  2. EXELON PATCH [Suspect]
     Dosage: 9.5 MG DAILY
     Route: 062
     Dates: start: 20110301
  3. EXELON PATCH [Suspect]
     Dosage: UNK UKN, UNK
     Route: 062
     Dates: start: 20130528, end: 20130601

REACTIONS (13)
  - Bronchitis [Not Recovered/Not Resolved]
  - Pyrexia [Not Recovered/Not Resolved]
  - Cough [Not Recovered/Not Resolved]
  - Syncope [Unknown]
  - Application site erythema [Not Recovered/Not Resolved]
  - Application site pruritus [Not Recovered/Not Resolved]
  - Application site irritation [Not Recovered/Not Resolved]
  - Weight decreased [Not Recovered/Not Resolved]
  - Pruritus [Not Recovered/Not Resolved]
  - Fatigue [Not Recovered/Not Resolved]
  - Erythema [Unknown]
  - Hyperaesthesia [Unknown]
  - Rash pruritic [Unknown]
